FAERS Safety Report 6489088-4 (Version None)
Quarter: 2009Q4

REPORT INFORMATION
  Report Type: 
  Country: None (occurrence: None)
  Receive Date: 20091210
  Receipt Date: 20091206
  Transmission Date: 20100525
  Serious: Yes (Death)
  Sender: FDA-Public Use
  Company Number: IN-ELI_LILLY_AND_COMPANY-IN200912001417

PATIENT
  Age: 62 Year
  Sex: Female

DRUGS (1)
  1. XIGRIS [Suspect]
     Indication: POST PROCEDURAL SEPSIS
     Dosage: UNK, UNKNOWN
     Route: 042
     Dates: start: 20091204

REACTIONS (1)
  - HYPOTENSION [None]
